FAERS Safety Report 15290888 (Version 1)
Quarter: 2018Q4

REPORT INFORMATION
  Report Type: Spontaneous
  Country: DK (occurrence: DK)
  Receive Date: 20180817
  Receipt Date: 20180817
  Transmission Date: 20190204
  Serious: Yes (Hospitalization, Other)
  Sender: FDA-Public Use
  Company Number: DK-TEVA-2018-DK-942819

PATIENT
  Age: 75 Year
  Sex: Female

DRUGS (15)
  1. SIMVASTATIN ^ORION^ [Concomitant]
     Active Substance: SIMVASTATIN
     Indication: HYPERCHOLESTEROLAEMIA
     Dosage: 40 MILLIGRAM DAILY;
     Route: 048
     Dates: start: 20180521, end: 20180710
  2. MOVICOL [Concomitant]
     Active Substance: POLYETHYLENE GLYCOL 3350\POTASSIUM CHLORIDE\SODIUM BICARBONATE\SODIUM CHLORIDE
     Indication: CONSTIPATION
     Dosage: STRENGTH:?
     Route: 048
     Dates: start: 20161213
  3. OXABENZ [Interacting]
     Active Substance: OXAZEPAM
     Indication: ANXIETY
     Dosage: 15 MILLIGRAM DAILY;
     Route: 048
     Dates: start: 20180703, end: 20180712
  4. XARELTO [Concomitant]
     Active Substance: RIVAROXABAN
     Indication: ATRIAL FIBRILLATION
     Dosage: 20 MILLIGRAM DAILY;
     Route: 048
     Dates: start: 20140625
  5. DULCOLAX NOS [Concomitant]
     Active Substance: BISACODYL OR DOCUSATE SODIUM
     Indication: CONSTIPATION
     Route: 054
     Dates: start: 20180212
  6. TEMESTA (LORAZEPAM) [Interacting]
     Active Substance: LORAZEPAM
     Indication: ANXIETY
     Dosage: DOSE: 1 TABLET X 3 + PN MAX X 3, STYRKE: 1MG
     Route: 048
     Dates: start: 20180621, end: 20180713
  7. OXYCODONHYDROCHLORID ^LANNACHER^ [Interacting]
     Active Substance: OXYCODONE HYDROCHLORIDE
     Indication: BACK PAIN
     Dosage: 60 MILLIGRAM DAILY;
     Route: 048
     Dates: start: 2017
  8. RAMIPRIL ^HEXAL^ [Concomitant]
     Indication: HYPERTENSION
     Dosage: 2.5 MILLIGRAM DAILY;
     Route: 048
     Dates: start: 20140209
  9. OMEPRAZOL ^ACTAVIS^ [Concomitant]
     Indication: GASTROOESOPHAGEAL REFLUX DISEASE
     Dosage: 40 MILLIGRAM DAILY;
     Route: 048
     Dates: start: 20180522
  10. OXYCODONHYDROCHLORID ^ACTAVIS^ [Suspect]
     Active Substance: OXYCODONE HYDROCHLORIDE
     Indication: BACK PAIN
     Dosage: DOSE: 1 TABLET AS NEEDED, MAX X 6,
     Route: 048
     Dates: start: 2017, end: 20180712
  11. CALCICHEW-D3 FORTE [Concomitant]
     Active Substance: CALCIUM\CHOLECALCIFEROL
     Indication: OSTEOPOROSIS
     Dosage: 2 DOSAGE FORMS DAILY; STRENGTH: 500MG + 10 MIKROGRAM
     Route: 048
     Dates: start: 20171109, end: 20180710
  12. LAXOBERAL [Concomitant]
     Active Substance: SODIUM PICOSULFATE
     Indication: CONSTIPATION
     Dosage: STRENGTH: 7,5MG/ML
     Route: 048
     Dates: start: 20180703
  13. CORDARONE X [Interacting]
     Active Substance: AMIODARONE HYDROCHLORIDE
     Indication: ARRHYTHMIA
     Dosage: 100 MILLIGRAM DAILY;
     Route: 048
     Dates: start: 20121122
  14. METADON ^DAK^ [Interacting]
     Active Substance: METHADONE HYDROCHLORIDE
     Indication: BACK PAIN
     Dosage: 45 MILLIGRAM DAILY;
     Route: 048
     Dates: start: 20180219
  15. METOPROLOLSUCCINAT ^HEXAL^ [Concomitant]
     Active Substance: METOPROLOL SUCCINATE
     Indication: ATRIAL FIBRILLATION
     Dosage: 12.5 MILLIGRAM DAILY;
     Route: 048
     Dates: start: 20180604

REACTIONS (2)
  - Drug interaction [Unknown]
  - Delirium [Recovering/Resolving]

NARRATIVE: CASE EVENT DATE: 201806
